FAERS Safety Report 14972597 (Version 1)
Quarter: 2018Q2

REPORT INFORMATION
  Report Type: Spontaneous
  Country: GB (occurrence: GB)
  Receive Date: 20180605
  Receipt Date: 20180605
  Transmission Date: 20180711
  Serious: Yes (Other)
  Sender: FDA-Public Use
  Company Number: GB-SUN PHARMACEUTICAL INDUSTRIES LTD-2018RR-174730

PATIENT
  Age: 15 Year
  Sex: Male
  Weight: 56 kg

DRUGS (2)
  1. ISOTRETINOIN. [Suspect]
     Active Substance: ISOTRETINOIN
     Dosage: 30 MG, DAILY
     Route: 048
     Dates: start: 20180426
  2. ISOTRETINOIN. [Suspect]
     Active Substance: ISOTRETINOIN
     Indication: ACNE
     Dosage: 20 MG, DAILY
     Route: 048

REACTIONS (7)
  - Anxiety [Recovering/Resolving]
  - Swelling face [Recovering/Resolving]
  - Disturbance in attention [Recovering/Resolving]
  - Flushing [Recovering/Resolving]
  - Agitation [Recovering/Resolving]
  - Hyperventilation [Not Recovered/Not Resolved]
  - Disorganised speech [Unknown]
